FAERS Safety Report 10177134 (Version 1)
Quarter: 2014Q2

REPORT INFORMATION
  Report Type: Spontaneous
  Country: US (occurrence: US)
  Receive Date: 20140516
  Receipt Date: 20140516
  Transmission Date: 20141212
  Serious: Yes (Other)
  Sender: FDA-Public Use
  Company Number: 2014SP001451

PATIENT
  Sex: Female

DRUGS (11)
  1. LATUDA [Suspect]
     Indication: BIPOLAR DISORDER
     Route: 048
     Dates: start: 201308, end: 201309
  2. ACTOS [Concomitant]
     Indication: TYPE 2 DIABETES MELLITUS
     Route: 048
  3. FLURAZEPAM [Concomitant]
     Indication: INSOMNIA
     Route: 048
  4. LAMICTAL [Concomitant]
     Route: 048
  5. CRESTOR [Concomitant]
     Indication: BLOOD CHOLESTEROL INCREASED
     Route: 048
  6. VISTARIL /00058402/ [Concomitant]
     Route: 048
  7. METHOCARBAMOL [Concomitant]
     Indication: BACK PAIN
     Route: 048
  8. DIAZEPAM [Concomitant]
     Route: 048
  9. LEXAPRO [Concomitant]
     Route: 048
  10. ALLEGRA [Concomitant]
     Indication: HYPERSENSITIVITY
     Route: 048
  11. HYDROCODONE [Concomitant]
     Indication: BACK PAIN
     Route: 048

REACTIONS (5)
  - Altered state of consciousness [Recovered/Resolved]
  - Feeling abnormal [Recovered/Resolved]
  - Imprisonment [Recovered/Resolved]
  - Blood glucose increased [Recovered/Resolved]
  - Prescribed overdose [None]
